FAERS Safety Report 5765473-0 (Version None)
Quarter: 2008Q2

REPORT INFORMATION
  Report Type: 
  Country: None (occurrence: None)
  Receive Date: 20080611
  Receipt Date: 20080610
  Transmission Date: 20081010
  Serious: Yes (Other)
  Sender: FDA-Public Use
  Company Number: B0485953A

PATIENT
  Age: 50 Year
  Sex: Male

DRUGS (12)
  1. PAXIL [Suspect]
     Indication: DYSTHYMIC DISORDER
     Dosage: 50MG PER DAY
     Route: 048
     Dates: start: 20020323
  2. PAXIL [Suspect]
     Indication: PANIC DISORDER
     Dosage: 50MG PER DAY
     Route: 048
     Dates: start: 20070409
  3. MEILAX [Concomitant]
     Dosage: 1MG PER DAY
     Route: 048
     Dates: start: 20020323
  4. SOLANAX [Concomitant]
     Indication: PANIC DISORDER
     Dosage: .8MG THREE TIMES PER DAY
     Route: 048
  5. SOLANAX [Concomitant]
     Dosage: 1.6MG PER DAY
     Route: 048
  6. MYSLEE [Concomitant]
     Indication: INSOMNIA
     Dosage: 10MG PER DAY
     Route: 048
     Dates: start: 20020322
  7. DESYREL [Concomitant]
     Indication: DYSTHYMIC DISORDER
     Dosage: 25MG TWICE PER DAY
     Route: 048
  8. RIVOTRIL [Concomitant]
     Indication: PANIC DISORDER
     Dosage: 1MG PER DAY
     Route: 048
     Dates: start: 20030109
  9. LENDORMIN [Concomitant]
     Indication: INSOMNIA
     Dosage: .5MG PER DAY
     Route: 048
     Dates: start: 20020323
  10. DEPAS [Concomitant]
     Dosage: 1MG PER DAY
     Route: 048
  11. DEPAS [Concomitant]
     Indication: PANIC DISORDER
     Route: 048
     Dates: start: 20020323
  12. SOLANAX [Concomitant]
     Dosage: .8MG PER DAY
     Route: 048
     Dates: start: 20020330

REACTIONS (3)
  - AGGRESSION [None]
  - IDIOSYNCRATIC ALCOHOL INTOXICATION [None]
  - VIOLENCE-RELATED SYMPTOM [None]
